FAERS Safety Report 7730706-8 (Version None)
Quarter: 2011Q3

REPORT INFORMATION
  Report Type: 
  Country: None (occurrence: None)
  Receive Date: 20110906
  Receipt Date: 20110829
  Transmission Date: 20111222
  Serious: Yes (Hospitalization)
  Sender: FDA-Public Use
  Company Number: US-GLAXOSMITHKLINE-A0942723A

PATIENT
  Age: 82 Year
  Sex: Male

DRUGS (4)
  1. FOSAMAX [Concomitant]
  2. CARVEDILOL [Suspect]
     Indication: HYPERTENSION
     Route: 048
  3. COREG CR [Suspect]
     Indication: HYPERTENSION
     Route: 048
  4. NORVASC [Concomitant]

REACTIONS (9)
  - PULMONARY VALVE INCOMPETENCE [None]
  - PRESYNCOPE [None]
  - FALL [None]
  - CHEST INJURY [None]
  - PULMONARY ARTERIAL PRESSURE INCREASED [None]
  - PULMONARY HYPERTENSION [None]
  - HEAD INJURY [None]
  - INJURY [None]
  - CARDIAC MURMUR [None]
